FAERS Safety Report 9097329 (Version 1)
Quarter: 2013Q1

REPORT INFORMATION
  Report Type: Spontaneous
  Country: LB (occurrence: LB)
  Receive Date: 20130212
  Receipt Date: 20130212
  Transmission Date: 20140127
  Serious: Yes (Other)
  Sender: FDA-Public Use
  Company Number: LB-BAXTER-2013BAX005267

PATIENT
  Age: 10 Year
  Sex: Male

DRUGS (5)
  1. ENDOXAN 1G [Suspect]
     Indication: ACUTE LYMPHOCYTIC LEUKAEMIA
  2. CYCLOSPORINE [Suspect]
     Indication: ACUTE LYMPHOCYTIC LEUKAEMIA
     Route: 042
  3. CYCLOSPORINE [Suspect]
     Route: 048
  4. METHOTREXATE [Suspect]
     Indication: ACUTE LYMPHOCYTIC LEUKAEMIA
     Route: 042
  5. METHOTREXATE [Suspect]
     Route: 042

REACTIONS (8)
  - Posterior reversible encephalopathy syndrome [Recovered/Resolved]
  - Febrile neutropenia [Recovered/Resolved]
  - Diarrhoea [None]
  - Platelet count decreased [None]
  - Haemoglobin decreased [None]
  - Hypertensive encephalopathy [None]
  - Toxicity to various agents [None]
  - Graft versus host disease in skin [None]
